FAERS Safety Report 4448670-6 (Version None)
Quarter: 2004Q3

REPORT INFORMATION
  Report Type: 
  Country: None (occurrence: None)
  Receive Date: 20040909
  Receipt Date: 20040819
  Transmission Date: 20050211
  Serious: Yes (Life-Threatening)
  Sender: FDA-Public Use
  Company Number: A04200400761

PATIENT
  Sex: Male

DRUGS (1)
  1. ELOXATIN [Suspect]
     Indication: COLORECTAL CANCER METASTATIC
     Route: 041
     Dates: start: 20040801, end: 20040801

REACTIONS (4)
  - CARDIAC ARREST [None]
  - CONVULSION [None]
  - INFUSION RELATED REACTION [None]
  - TACHYCARDIA [None]
